FAERS Safety Report 4613612-7 (Version None)
Quarter: 2005Q1

REPORT INFORMATION
  Report Type: 
  Country: None (occurrence: None)
  Receive Date: 20050321
  Receipt Date: 20050131
  Transmission Date: 20050727
  Serious: Yes (Death, Hospitalization)
  Sender: FDA-Public Use
  Company Number: US-BRISTOL-MYERS SQUIBB COMPANY-12844122

PATIENT
  Age: 69 Year
  Sex: Male

DRUGS (1)
  1. MEGACE [Suspect]
     Indication: FAILURE TO THRIVE
     Route: 048
     Dates: start: 20050119, end: 20050124

REACTIONS (2)
  - DIARRHOEA [None]
  - MALIGNANT NEOPLASM PROGRESSION [None]
